FAERS Safety Report 16614485 (Version 1)
Quarter: 2019Q3

REPORT INFORMATION
  Report Type: Spontaneous
  Country: US (occurrence: US)
  Receive Date: 20190723
  Receipt Date: 20190723
  Transmission Date: 20191004
  Serious: Yes (Other)
  Sender: FDA-Public Use
  Company Number: US-TEVA-2019-US-1079830

PATIENT

DRUGS (1)
  1. ACTAVIS CLONAZEPAM [Suspect]
     Active Substance: CLONAZEPAM
     Route: 065

REACTIONS (5)
  - Throat tightness [Unknown]
  - Product substitution issue [Unknown]
  - Apparent death [Unknown]
  - Shock [Unknown]
  - Product use in unapproved indication [Unknown]
